FAERS Safety Report 8002559-4 (Version None)
Quarter: 2011Q4

REPORT INFORMATION
  Report Type: 
  Country: None (occurrence: None)
  Receive Date: 20111220
  Receipt Date: 20111212
  Transmission Date: 20120403
  Serious: Yes (Other)
  Sender: FDA-Public Use
  Company Number: 1000026217

PATIENT
  Age: 56 Year
  Sex: Female

DRUGS (1)
  1. LEXAPRO [Suspect]
     Indication: DEPRESSION
     Dosage: 20 MG (20 MG, 1 IN 1 D), ORAL
     Route: 048
     Dates: start: 20110401, end: 20111209

REACTIONS (3)
  - DECREASED INTEREST [None]
  - CONDITION AGGRAVATED [None]
  - NEOPLASM MALIGNANT [None]
